FAERS Safety Report 5836718-3 (Version None)
Quarter: 2008Q3

REPORT INFORMATION
  Report Type: 
  Country: None (occurrence: None)
  Receive Date: 20080806
  Receipt Date: 20080806
  Transmission Date: 20090109
  Serious: Yes (Life-Threatening)
  Sender: FDA-Public Use
  Company Number: None

PATIENT
  Age: 31 Year
  Sex: Male
  Weight: 81.6475 kg

DRUGS (1)
  1. PROAIR HFA [Suspect]
     Indication: ASTHMA EXERCISE INDUCED
     Dosage: 2 PUFFS 4-6 HRS AS NEEDED PO
     Route: 048
     Dates: start: 20080601, end: 20080805

REACTIONS (4)
  - ASTHMA [None]
  - DRUG INEFFECTIVE [None]
  - FEAR [None]
  - ILL-DEFINED DISORDER [None]
